FAERS Safety Report 6104644-0 (Version None)
Quarter: 2009Q1

REPORT INFORMATION
  Report Type: 
  Country: None (occurrence: None)
  Receive Date: 20090303
  Receipt Date: 20090203
  Transmission Date: 20090719
  Serious: Yes (Hospitalization)
  Sender: FDA-Public Use
  Company Number: 20096287

PATIENT
  Age: 10 Year
  Sex: Male

DRUGS (1)
  1. LIORESAL [Suspect]
     Indication: MUSCLE SPASTICITY
     Dosage: 2012 MCG, DAILY, INTRATHECAL

REACTIONS (3)
  - BRADYPNOEA [None]
  - LETHARGY [None]
  - NO THERAPEUTIC RESPONSE [None]
